FAERS Safety Report 14284336 (Version 3)
Quarter: 2018Q2

REPORT INFORMATION
  Report Type: Spontaneous
  Country: FR (occurrence: FR)
  Receive Date: 20171214
  Receipt Date: 20180427
  Transmission Date: 20180711
  Serious: Yes (Hospitalization)
  Sender: FDA-Public Use
  Company Number: FR-CELGENEUS-FRA-20171200680

PATIENT
  Age: 77 Year
  Sex: Male

DRUGS (6)
  1. VIDAZA [Suspect]
     Active Substance: AZACITIDINE
     Indication: ACUTE MYELOID LEUKAEMIA
     Route: 041
     Dates: start: 20171012
  2. JAKAVI [Suspect]
     Active Substance: RUXOLITINIB
     Dosage: 30 MILLIGRAM
     Route: 048
     Dates: start: 20130122, end: 201708
  3. VIDAZA [Suspect]
     Active Substance: AZACITIDINE
     Dosage: 75 MILLIGRAM/SQ. METER
     Route: 042
     Dates: start: 20161207, end: 20170801
  4. JAKAVI [Suspect]
     Active Substance: RUXOLITINIB
     Dosage: 30 MILLIGRAM
     Route: 048
     Dates: start: 20170928
  5. VIDAZA [Suspect]
     Active Substance: AZACITIDINE
     Route: 041
  6. JAKAVI [Suspect]
     Active Substance: RUXOLITINIB
     Indication: MYELOFIBROSIS
     Dosage: 30 MILLIGRAM
     Route: 048
     Dates: start: 20170124, end: 201708

REACTIONS (10)
  - Psoas abscess [Recovered/Resolved]
  - Back pain [Unknown]
  - Osteoarthritis [Not Recovered/Not Resolved]
  - Staphylococcal sepsis [Recovered/Resolved]
  - Splenic abscess [Not Recovered/Not Resolved]
  - Orchitis [Not Recovered/Not Resolved]
  - Hallucination [Unknown]
  - Weight decreased [Unknown]
  - Malnutrition [Recovering/Resolving]
  - Intervertebral discitis [Not Recovered/Not Resolved]

NARRATIVE: CASE EVENT DATE: 201708
